FAERS Safety Report 16883754 (Version 1)
Quarter: 2019Q4

REPORT INFORMATION
  Report Type: Report from Study
  Country: IL (occurrence: IL)
  Receive Date: 20191004
  Receipt Date: 20191004
  Transmission Date: 20200122
  Serious: Yes (Hospitalization)
  Sender: FDA-Public Use
  Company Number: IL-ROCHE-2421487

PATIENT
  Sex: Male

DRUGS (1)
  1. OCREVUS [Suspect]
     Active Substance: OCRELIZUMAB
     Indication: RELAPSING-REMITTING MULTIPLE SCLEROSIS
     Route: 042
     Dates: start: 20190227

REACTIONS (6)
  - Urinary incontinence [Recovering/Resolving]
  - Prostatitis [Recovering/Resolving]
  - Gait disturbance [Recovering/Resolving]
  - Prostatic specific antigen increased [Recovering/Resolving]
  - Alopecia [Recovering/Resolving]
  - Pyrexia [Recovered/Resolved]
